FAERS Safety Report 7165127-2 (Version None)
Quarter: 2010Q4

REPORT INFORMATION
  Report Type: 
  Country: None (occurrence: None)
  Receive Date: 20101215
  Receipt Date: 20091218
  Transmission Date: 20110411
  Serious: No
  Sender: FDA-Public Use
  Company Number: US-AMGEN-KDL381277

PATIENT

DRUGS (2)
  1. ENBREL [Suspect]
     Indication: RHEUMATOID ARTHRITIS
     Dosage: 50 MG, QWK
     Route: 058
     Dates: start: 20090906, end: 20091217
  2. METHOTREXATE [Concomitant]
     Dosage: 15 MG, QWK
     Route: 048
     Dates: start: 20061001

REACTIONS (5)
  - HYPERSENSITIVITY [None]
  - INJECTION SITE ABSCESS [None]
  - INJECTION SITE RASH [None]
  - RHEUMATOID ARTHRITIS [None]
  - TENDONITIS [None]
